FAERS Safety Report 25275275 (Version 1)
Quarter: 2025Q2

REPORT INFORMATION
  Report Type: Report from Study
  Country: US (occurrence: US)
  Receive Date: 20250506
  Receipt Date: 20250506
  Transmission Date: 20250717
  Serious: Yes (Hospitalization)
  Sender: EISAI
  Company Number: US-Eisai-EC-2025-188722

PATIENT
  Age: 70 Year
  Sex: Female
  Weight: 93.8 kg

DRUGS (13)
  1. LENVIMA [Suspect]
     Active Substance: LENVATINIB
     Indication: Renal cancer
     Dates: start: 20240917
  2. LENVIMA [Suspect]
     Active Substance: LENVATINIB
     Dates: start: 2025, end: 2025
  3. OMEGA-3 ACIDS [Concomitant]
     Active Substance: OMEGA-3 FATTY ACIDS
  4. PREGABALIN [Concomitant]
     Active Substance: PREGABALIN
  5. TYLENOL [Concomitant]
     Active Substance: ACETAMINOPHEN
  6. VITAMIN D3 [Concomitant]
     Active Substance: CHOLECALCIFEROL
  7. CALCIUM [Concomitant]
     Active Substance: CALCIUM
  8. PHOSPHORUS [Concomitant]
     Active Substance: PHOSPHORUS
  9. JARDIANCE [Concomitant]
     Active Substance: EMPAGLIFLOZIN
  10. ONDANSETRON [Concomitant]
     Active Substance: ONDANSETRON
  11. PROCHLORPERAZINE [Concomitant]
     Active Substance: PROCHLORPERAZINE
  12. VITAMIN B12 [Concomitant]
     Active Substance: CYANOCOBALAMIN
  13. IRON [Concomitant]
     Active Substance: IRON

REACTIONS (3)
  - Diarrhoea [Unknown]
  - Dehydration [Unknown]
  - Decreased appetite [Unknown]

NARRATIVE: CASE EVENT DATE: 20250101
